FAERS Safety Report 14405478 (Version 2)
Quarter: 2018Q1

REPORT INFORMATION
  Report Type: Spontaneous
  Country: US (occurrence: US)
  Receive Date: 20180118
  Receipt Date: 20180209
  Transmission Date: 20180509
  Serious: Yes (Death)
  Sender: FDA-Public Use
  Company Number: US-PFIZER INC-2018016369

PATIENT
  Age: 75 Year
  Sex: Male
  Weight: 64.85 kg

DRUGS (1)
  1. SUTENT [Suspect]
     Active Substance: SUNITINIB MALATE
     Indication: RENAL CANCER
     Dosage: 50 MG, CYCLIC (DAY 1-28Q 42DAYS)(DAYS 1-28 42DAYS)
     Route: 048
     Dates: start: 20180104

REACTIONS (7)
  - Hypersomnia [Unknown]
  - Increased appetite [Recovering/Resolving]
  - Nocturia [Unknown]
  - Weight decreased [Unknown]
  - Death [Fatal]
  - Platelet count increased [Unknown]
  - Blood glucose increased [Unknown]
